FAERS Safety Report 24935413 (Version 1)
Quarter: 2025Q1

REPORT INFORMATION
  Report Type: Spontaneous
  Country: SY (occurrence: None)
  Receive Date: 20250206
  Receipt Date: 20250206
  Transmission Date: 20250409
  Serious: Yes (Other)
  Sender: ENCUBE ETHICALS
  Company Number: SY-Encube-001632

PATIENT
  Age: 36 Year
  Sex: Male

DRUGS (1)
  1. FLUOROURACIL [Suspect]
     Active Substance: FLUOROURACIL
     Indication: Basal cell naevus syndrome
     Dosage: INJECTION 50 MG/ML FOR SIX SESSIONS
     Route: 026

REACTIONS (5)
  - Erythema [Unknown]
  - Ulcer [Unknown]
  - Necrosis [Unknown]
  - Off label use [Unknown]
  - Injection site discomfort [Unknown]
